FAERS Safety Report 8108139-4 (Version None)
Quarter: 2012Q1

REPORT INFORMATION
  Report Type: 
  Country: None (occurrence: None)
  Receive Date: 20120202
  Receipt Date: 20120120
  Transmission Date: 20120608
  Serious: Yes (Other)
  Sender: FDA-Public Use
  Company Number: PT-B.I. PHARMACEUTICALS,INC./RIDGEFIELD-2012-EU-00523BY

PATIENT
  Sex: Female

DRUGS (3)
  1. UNKNOWN [Concomitant]
     Dates: start: 20120117, end: 20120117
  2. OLCADIL [Suspect]
     Indication: HYPERTENSION
     Dosage: 2 MG
     Route: 048
     Dates: start: 20111226
  3. TELMISARTAN [Suspect]
     Indication: HYPERTENSION
     Dosage: 80 MG
     Route: 048
     Dates: start: 20111226, end: 20120120

REACTIONS (1)
  - LABYRINTHITIS [None]
